FAERS Safety Report 4719015-9 (Version None)
Quarter: 2005Q3

REPORT INFORMATION
  Report Type: 
  Country: None (occurrence: None)
  Receive Date: 20050720
  Receipt Date: 20050630
  Transmission Date: 20060218
  Serious: Yes (Hospitalization)
  Sender: FDA-Public Use
  Company Number: EWC050744792

PATIENT
  Age: 58 Year
  Sex: Female

DRUGS (2)
  1. EVISTA [Suspect]
     Indication: OSTEOPOROSIS
     Dosage: 60 MG DAY
     Dates: start: 20020201, end: 20050501
  2. LOSEC (OMEPRAZOLE SODIUM) [Concomitant]

REACTIONS (1)
  - ENDOMETRIAL CANCER [None]
